FAERS Safety Report 5243403-8 (Version None)
Quarter: 2007Q1

REPORT INFORMATION
  Report Type: 
  Country: None (occurrence: None)
  Receive Date: 20061201
  Receipt Date: 20060817
  Transmission Date: 20070707
  Serious: No
  Sender: FDA-Public Use
  Company Number: 2006PV019699

PATIENT
  Age: 58 Year
  Sex: Female

DRUGS (6)
  1. BYETTA [Suspect]
     Indication: DIABETES MELLITUS NON-INSULIN-DEPENDENT
     Dosage: 5 MCG; BID; SC
     Route: 058
     Dates: start: 20060808, end: 20060817
  2. HUMALOG [Concomitant]
  3. HUMULIN N [Concomitant]
  4. GLUCOVANCE [Concomitant]
  5. HUMALOG [Concomitant]
  6. HUMULIN N [Concomitant]

REACTIONS (5)
  - ABDOMINAL PAIN UPPER [None]
  - BLOOD GLUCOSE INCREASED [None]
  - DECREASED APPETITE [None]
  - MEDICATION ERROR [None]
  - NAUSEA [None]
